FAERS Safety Report 8906542 (Version 3)
Quarter: 2013Q3

REPORT INFORMATION
  Report Type: Report from Study
  Country: FR (occurrence: FR)
  Receive Date: 20121114
  Receipt Date: 20130902
  Transmission Date: 20140515
  Serious: Yes (Death, Life-Threatening, Hospitalization)
  Sender: FDA-Public Use
  Company Number: FR-SHIRE-ALL1-2012-05559

PATIENT
  Age: 17 Year
  Sex: Male
  Weight: 30 kg

DRUGS (3)
  1. IDURSULFASE [Suspect]
     Indication: MUCOPOLYSACCHARIDOSIS II
     Dosage: 18 MG, 1X/WEEK
     Route: 041
     Dates: start: 20070202
  2. TRILEPTAL [Concomitant]
     Indication: EPILEPSY
     Dosage: 240 MG, 2X/DAY:BID
     Route: 048
     Dates: start: 20081120
  3. ATARAX                             /00058401/ [Concomitant]
     Indication: PREMEDICATION
     Dosage: 0.5 MG/KG, 1X/WEEK
     Route: 048
     Dates: start: 20070202

REACTIONS (2)
  - Cardio-respiratory arrest [Fatal]
  - Spinal decompression [Unknown]
